FAERS Safety Report 7593550-0 (Version None)
Quarter: 2011Q3

REPORT INFORMATION
  Report Type: 
  Country: None (occurrence: None)
  Receive Date: 20110706
  Receipt Date: 20110624
  Transmission Date: 20111222
  Serious: Yes (Life-Threatening, Hospitalization)
  Sender: FDA-Public Use
  Company Number: DE-BRISTOL-MYERS SQUIBB COMPANY-15721111

PATIENT
  Age: 71 Year
  Sex: Male

DRUGS (12)
  1. BICALUTAMIDE [Concomitant]
     Dates: start: 20100501, end: 20110213
  2. TORSEMIDE [Concomitant]
  3. ASPIRIN [Concomitant]
  4. SIMVASTATIN [Concomitant]
  5. IPILIMUMAB [Suspect]
     Indication: PROSTATE CANCER
     Dosage: NO OF COURSES: 1
     Route: 042
     Dates: start: 20110418, end: 20110506
  6. HEPARIN [Concomitant]
  7. SPIRONOLACTONE [Concomitant]
  8. LUTEINIZING HORMONE RELEASANT [Concomitant]
     Dates: start: 20100501, end: 20110213
  9. PLACEBO [Suspect]
     Indication: PROSTATE CANCER
     Dosage: NO OF COURSES: 1
     Route: 042
     Dates: start: 20110418, end: 20110506
  10. BISOPROLOL FUMARATE [Concomitant]
  11. AMOXICILLIN [Concomitant]
  12. METAMIZOLE [Concomitant]

REACTIONS (5)
  - IVTH NERVE PARALYSIS [None]
  - UROSEPSIS [None]
  - MYASTHENIA GRAVIS CRISIS [None]
  - MYASTHENIA GRAVIS [None]
  - MOTOR DYSFUNCTION [None]
